FAERS Safety Report 5912410-1 (Version None)
Quarter: 2008Q4

REPORT INFORMATION
  Report Type: 
  Country: None (occurrence: None)
  Receive Date: 20081008
  Receipt Date: 20080930
  Transmission Date: 20090506
  Serious: Yes (Other)
  Sender: FDA-Public Use
  Company Number: GB-WATSON-2008-05850

PATIENT
  Age: 7 Year
  Sex: Female

DRUGS (5)
  1. PREDNISOLONE ACETATE [Suspect]
     Indication: EVANS SYNDROME
     Dosage: UNK
     Route: 065
  2. IMMUNE GLOBULIN INTRAVENOUS (HUMAN) [Suspect]
     Indication: EVANS SYNDROME
     Dosage: UNK
     Route: 042
  3. CYCLOSPORINE [Suspect]
     Indication: EVANS SYNDROME
     Dosage: UNK
  4. MYCOPHENOLATE MOFETIL [Suspect]
     Indication: EVANS SYNDROME
     Dosage: UNK
  5. RITUXIMAB [Suspect]
     Indication: EVANS SYNDROME
     Dosage: UNK

REACTIONS (1)
  - PULMONARY HYPERTENSION [None]
